FAERS Safety Report 8210983-X (Version None)
Quarter: 2012Q1

REPORT INFORMATION
  Report Type: 
  Country: None (occurrence: None)
  Receive Date: 20120229
  Receipt Date: 20110712
  Transmission Date: 20120608
  Serious: Yes (Hospitalization)
  Sender: FDA-Public Use
  Company Number: PHHY2011US63532

PATIENT
  Age: 11 Year
  Sex: Female

DRUGS (2)
  1. TEGRETOL [Suspect]
     Dosage: 200 MG, BID ; 400 MG ; 700 MG
  2. PHENOBARBITAL TAB [Concomitant]

REACTIONS (3)
  - CONVULSION [None]
  - ANTICONVULSANT DRUG LEVEL BELOW THERAPEUTIC [None]
  - GROWTH ACCELERATED [None]
